FAERS Safety Report 5413014-X (Version None)
Quarter: 2007Q3

REPORT INFORMATION
  Report Type: 
  Country: None (occurrence: None)
  Receive Date: 20070813
  Receipt Date: 20070801
  Transmission Date: 20080115
  Serious: Yes (Hospitalization)
  Sender: FDA-Public Use
  Company Number: FR-PFIZER INC-2007064551

PATIENT
  Sex: Female
  Weight: 62 kg

DRUGS (25)
  1. NEURONTIN [Suspect]
     Dosage: DAILY DOSE:500MG
     Route: 048
     Dates: start: 20070507, end: 20070510
  2. LYRICA [Suspect]
     Dosage: TEXT:2 DAILY
     Route: 048
     Dates: start: 20070516, end: 20070522
  3. STRONTIUM CHLORIDE [Suspect]
     Dosage: DAILY DOSE:2GRAM
     Route: 048
     Dates: start: 20070424, end: 20070624
  4. CLONAZEPAM [Concomitant]
     Dates: start: 20070505, end: 20070604
  5. ACUPAN [Concomitant]
     Dates: start: 20070505, end: 20070520
  6. ANTALVIC [Concomitant]
     Dates: start: 20070519, end: 20070522
  7. TILDIEM [Concomitant]
  8. LASIX [Concomitant]
  9. LIPANOR [Concomitant]
  10. VASTAREL [Concomitant]
  11. DIGOXIN [Concomitant]
  12. PREVISCAN [Concomitant]
  13. DISCOTRINE [Concomitant]
  14. SERETIDE ^ALLEN + HANBURYS LTD^ [Concomitant]
  15. SALBUTAMOL [Concomitant]
  16. SODIUM FEREDETATE [Concomitant]
  17. SPECIAFOLDINE [Concomitant]
  18. CETORNAN [Concomitant]
  19. BECILAN [Concomitant]
  20. UVEDOSE [Concomitant]
  21. CLARITIN [Concomitant]
  22. ALL OTHER THERAPEUTIC PRODUCTS [Concomitant]
  23. EUPANTOL [Concomitant]
  24. FAMOTIDINE [Concomitant]
  25. NITROGLYCERIN [Concomitant]

REACTIONS (3)
  - CONFUSIONAL STATE [None]
  - HYPERCALCAEMIA [None]
  - RENAL FAILURE [None]
